FAERS Safety Report 6359294-8 (Version None)
Quarter: 2009Q3

REPORT INFORMATION
  Report Type: 
  Country: None (occurrence: None)
  Receive Date: 20090917
  Receipt Date: 20090902
  Transmission Date: 20100115
  Serious: Yes (Other)
  Sender: FDA-Public Use
  Company Number: PL-ROCHE-641096

PATIENT
  Age: 72 Year
  Sex: Female
  Weight: 80 kg

DRUGS (1)
  1. BONIVA [Suspect]
     Indication: OSTEOPOROSIS
     Dosage: STOP DATE REPORTED AS 18/19 JUNE 2009.
     Route: 048

REACTIONS (3)
  - DYSPNOEA [None]
  - RASH [None]
  - STATUS ASTHMATICUS [None]
